FAERS Safety Report 5068212-4 (Version None)
Quarter: 2006Q3

REPORT INFORMATION
  Report Type: 
  Country: None (occurrence: None)
  Receive Date: 20060802
  Receipt Date: 20050603
  Transmission Date: 20061208
  Serious: Yes (Hospitalization)
  Sender: FDA-Public Use
  Company Number: US-BRISTOL-MYERS SQUIBB COMPANY-12993382

PATIENT
  Age: 79 Year
  Sex: Female
  Weight: 63 kg

DRUGS (6)
  1. COUMADIN [Suspect]
     Indication: ATRIAL FIBRILLATION
     Dosage: ON VARYING DOSES FOR PAST 7 YEARS.
     Route: 048
  2. TOPROL-XL [Concomitant]
  3. SYNTHROID [Concomitant]
  4. BENICAR [Concomitant]
  5. DIGOXIN [Concomitant]
  6. LIPITOR [Concomitant]

REACTIONS (3)
  - HAEMATURIA [None]
  - HAEMORRHAGE [None]
  - INTERNATIONAL NORMALISED RATIO INCREASED [None]
